FAERS Safety Report 14277477 (Version 1)
Quarter: 2017Q4

REPORT INFORMATION
  Report Type: Spontaneous
  Country: JP (occurrence: JP)
  Receive Date: 20171211
  Receipt Date: 20171211
  Transmission Date: 20180321
  Serious: Yes (Other)
  Sender: FDA-Public Use
  Company Number: JP-OTSUKA-006276

PATIENT
  Age: 63 Year
  Sex: Male
  Weight: 46 kg

DRUGS (16)
  1. AKINETON AUS [Concomitant]
     Indication: SCHIZOPHRENIA
     Dosage: 1 MG, QD
     Route: 048
     Dates: start: 200410, end: 20090331
  2. EBIOS [Concomitant]
     Indication: CONSTIPATION
     Dosage: 1 G, TID
     Route: 048
     Dates: start: 200410, end: 20090331
  3. QUAZEPAM. [Concomitant]
     Active Substance: QUAZEPAM
     Indication: SCHIZOPHRENIA
     Dosage: 15 MG, QD
     Route: 048
     Dates: start: 20090205, end: 20090331
  4. TAMSULOSIN HYDROCHLORIDE. [Concomitant]
     Active Substance: TAMSULOSIN HYDROCHLORIDE
     Dosage: RESTREAM CAPSULE
     Dates: start: 20080325, end: 20090331
  5. AKINETON [Concomitant]
     Active Substance: BIPERIDEN HYDROCHLORIDE
     Dosage: AKINETON AUS  POWDER
     Dates: end: 20090331
  6. ETIZOLAM [Concomitant]
     Active Substance: ETIZOLAM
     Dosage: PALGIN TABLET
     Dates: start: 20090305, end: 20090331
  7. ESTAZOLAM. [Concomitant]
     Active Substance: ESTAZOLAM
     Indication: SCHIZOPHRENIA
     Dosage: 2 MG, QD
     Route: 048
     Dates: start: 200410, end: 20090331
  8. YEAST, DRIED, FORTIFIED [Concomitant]
     Active Substance: YEAST
     Dosage: UNK
     Dates: end: 20090331
  9. ABILIFY [Suspect]
     Active Substance: ARIPIPRAZOLE
     Indication: SCHIZOPHRENIA
     Dosage: STARTED WITH 12MG/D  FORM: POWDER 1%
     Route: 048
     Dates: start: 20090305, end: 20090331
  10. ABILIFY [Suspect]
     Active Substance: ARIPIPRAZOLE
     Indication: SCHIZOPHRENIA
     Dosage: 6 MG, BID
     Route: 048
     Dates: start: 20090305, end: 20090331
  11. MAGMITT [Concomitant]
     Active Substance: MAGNESIUM OXIDE
     Indication: CONSTIPATION
     Dosage: 500 MG, TID
     Route: 048
     Dates: start: 20050319, end: 20090331
  12. PALGIN [Concomitant]
     Active Substance: AMINOPYRINE\ANTIPYRINE\CAFFEINE\PHENACETIN
     Indication: SCHIZOPHRENIA
     Dosage: 1 MG, QD
     Route: 048
     Dates: start: 20090305, end: 20090331
  13. IRIYAKIN [Concomitant]
     Indication: SCHIZOPHRENIA
     Dosage: 30 MG, QD
     Route: 048
     Dates: start: 200410, end: 20090331
  14. SENNOSIDE [Concomitant]
     Active Substance: SENNOSIDES
     Indication: CONSTIPATION
     Dosage: 24 MG, QD
     Route: 048
     Dates: start: 200410, end: 20090331
  15. RESTREAM [Concomitant]
     Indication: DYSURIA
     Dosage: 0.2 MG, QD
     Route: 048
     Dates: start: 20080325, end: 20090331
  16. SENNA [Concomitant]
     Active Substance: SENNA LEAF\SENNOSIDES\SENNOSIDES A AND B
     Dosage: TABS
     Dates: end: 20090331

REACTIONS (2)
  - Neuroleptic malignant syndrome [Recovered/Resolved]
  - Seizure [Recovered/Resolved]

NARRATIVE: CASE EVENT DATE: 20090331
